FAERS Safety Report 9041114 (Version 1)
Quarter: 2013Q1

REPORT INFORMATION
  Report Type: Spontaneous
  Country: US (occurrence: None)
  Receive Date: 20130124
  Receipt Date: 20130124
  Transmission Date: 20140127
  Serious: Yes (Other)
  Sender: FDA-Public Use
  Company Number: None

PATIENT
  Age: 71 Year
  Sex: Female
  Weight: 83.92 kg

DRUGS (1)
  1. NEUPRO [Suspect]
     Indication: PARKINSON^S DISEASE
     Dosage: 1 MG   1/ DAY
     Dates: start: 20121201

REACTIONS (7)
  - Muscle spasms [None]
  - Movement disorder [None]
  - Tremor [None]
  - Headache [None]
  - Anger [None]
  - Abnormal behaviour [None]
  - Condition aggravated [None]
